FAERS Safety Report 4875968-X (Version None)
Quarter: 2005Q4

REPORT INFORMATION
  Report Type: 
  Country: None (occurrence: None)
  Receive Date: 20051206
  Receipt Date: 20050802
  Transmission Date: 20060501
  Serious: Yes (Hospitalization)
  Sender: FDA-Public Use
  Company Number: USA0508104474

PATIENT
  Age: 48 Year
  Sex: Female
  Weight: 133 kg

DRUGS (12)
  1. CYMBALTA [Suspect]
     Indication: DEPRESSION
     Dosage: 120 MG DAY
     Dates: start: 20050301, end: 20050513
  2. EFFEXOR [Concomitant]
  3. INSULIN [Concomitant]
  4. METAGLIP [Concomitant]
  5. HYDROCHLOROTHIAZIDE [Concomitant]
  6. FLEXERIL [Concomitant]
  7. ATENOLOL [Concomitant]
  8. ATACAND [Concomitant]
  9. LIPITOR [Concomitant]
  10. KLONOPIN [Concomitant]
  11. ADDERALL XR 10 [Concomitant]
  12. WELLBUTRIN [Concomitant]

REACTIONS (9)
  - AGITATION [None]
  - COORDINATION ABNORMAL [None]
  - DISTURBANCE IN ATTENTION [None]
  - ENERGY INCREASED [None]
  - IRRITABILITY [None]
  - MANIA [None]
  - MOOD SWINGS [None]
  - OBSESSIVE-COMPULSIVE DISORDER [None]
  - SUICIDE ATTEMPT [None]
